FAERS Safety Report 20106422 (Version 1)
Quarter: 2021Q4

REPORT INFORMATION
  Report Type: Spontaneous
  Country: US (occurrence: US)
  Receive Date: 20211124
  Receipt Date: 20211124
  Transmission Date: 20220303
  Serious: Yes (Other)
  Sender: FDA-Public Use
  Company Number: US-BRISTOL-MYERS SQUIBB COMPANY-BMS-2021-125370

PATIENT
  Age: 66 Year
  Sex: Female

DRUGS (2)
  1. ORENCIA [Suspect]
     Active Substance: ABATACEPT
     Indication: Osteoporosis
     Dosage: 125 MILLIGRAM, QWK
     Route: 058
     Dates: start: 201701
  2. ORENCIA [Suspect]
     Active Substance: ABATACEPT
     Indication: Osteoporosis
     Dosage: 125 MILLIGRAM, QWK
     Route: 058
     Dates: start: 201701

REACTIONS (2)
  - Adverse event [Unknown]
  - Intentional product use issue [Unknown]
